FAERS Safety Report 23081086 (Version 4)
Quarter: 2023Q4

REPORT INFORMATION
  Report Type: Spontaneous
  Country: US (occurrence: US)
  Receive Date: 20231018
  Receipt Date: 20231218
  Transmission Date: 20240110
  Serious: Yes (Other)
  Sender: FDA-Public Use
  Company Number: US-JNJFOC-20231014429

PATIENT

DRUGS (1)
  1. EVITHROM [Suspect]
     Active Substance: THROMBIN HUMAN
     Indication: Cerebral haemorrhage
     Route: 065

REACTIONS (3)
  - Bradycardia [Recovered/Resolved]
  - Brain oedema [Unknown]
  - Off label use [Unknown]

NARRATIVE: CASE EVENT DATE: 20230101
